FAERS Safety Report 7201755-3 (Version None)
Quarter: 2010Q4

REPORT INFORMATION
  Report Type: 
  Country: None (occurrence: None)
  Receive Date: 20101215
  Receipt Date: 20101129
  Transmission Date: 20110411
  Serious: No
  Sender: FDA-Public Use
  Company Number: 2010-01031

PATIENT
  Age: 87 Year
  Sex: Female
  Weight: 59.8748 kg

DRUGS (14)
  1. ZICAM COLD REMEDY RAPIDMELTS WITH VITAMIN C [Suspect]
     Dosage: Q 3 HOURS X 3 DAYS
     Dates: start: 20101124, end: 20101124
  2. LISINOPRIL [Concomitant]
  3. METOPROLOL TARTRATE [Concomitant]
  4. CELEBREX [Concomitant]
  5. OMEPRAZOLE [Concomitant]
  6. PRAVASTATIN [Concomitant]
  7. WARFARIN [Concomitant]
  8. FISH OIL [Concomitant]
  9. OCULAR FORMULA [Concomitant]
  10. MAGNESIUM [Concomitant]
  11. TUMS [Concomitant]
  12. GLUCOSAMINE [Concomitant]
  13. FOSAMAX [Concomitant]
  14. VITAMIN D [Concomitant]

REACTIONS (1)
  - AGEUSIA [None]
